FAERS Safety Report 11873529 (Version 1)
Quarter: 2015Q4

REPORT INFORMATION
  Report Type: Spontaneous
  Country: CN (occurrence: CN)
  Receive Date: 20151228
  Receipt Date: 20151228
  Transmission Date: 20160305
  Serious: Yes (Other)
  Sender: FDA-Public Use
  Company Number: ALCN2015CN007844

PATIENT
  Age: 16 Year
  Sex: Female

DRUGS (1)
  1. TRAVATAN [Suspect]
     Active Substance: TRAVOPROST
     Indication: GLAUCOMA
     Dosage: UNK
     Route: 047

REACTIONS (5)
  - Intentional self-injury [Unknown]
  - Suicidal ideation [Unknown]
  - Homicidal ideation [Unknown]
  - Anger [Unknown]
  - Violence-related symptom [Unknown]
